FAERS Safety Report 4833110-5 (Version None)
Quarter: 2005Q4

REPORT INFORMATION
  Report Type: 
  Country: None (occurrence: None)
  Receive Date: 20051121
  Receipt Date: 20051110
  Transmission Date: 20060501
  Serious: Yes (Other)
  Sender: FDA-Public Use
  Company Number: CA-ROCHE-424596

PATIENT
  Age: 63 Year
  Sex: Female

DRUGS (2)
  1. CLONAZEPAM [Suspect]
     Indication: DRUG USE FOR UNKNOWN INDICATION
     Route: 048
  2. FLUOXETINE [Suspect]
     Indication: DRUG USE FOR UNKNOWN INDICATION
     Route: 048

REACTIONS (4)
  - ANXIETY [None]
  - DIARRHOEA [None]
  - RESTLESS LEGS SYNDROME [None]
  - TREMOR [None]
